FAERS Safety Report 7621525-1 (Version None)
Quarter: 2011Q3

REPORT INFORMATION
  Report Type: 
  Country: None (occurrence: None)
  Receive Date: 20110719
  Receipt Date: 20110713
  Transmission Date: 20111222
  Serious: Yes (Death)
  Sender: FDA-Public Use
  Company Number: VE-PFIZER INC-2011154826

PATIENT
  Age: 86 Year
  Sex: Female

DRUGS (1)
  1. CADUET [Suspect]
     Indication: HYPERTENSION
     Dosage: 5/40MG
     Route: 048

REACTIONS (1)
  - CEREBROVASCULAR ACCIDENT [None]
